FAERS Safety Report 23877296 (Version 1)
Quarter: 2024Q2

REPORT INFORMATION
  Report Type: Spontaneous
  Country: US (occurrence: US)
  Receive Date: 20240521
  Receipt Date: 20240521
  Transmission Date: 20240716
  Serious: Yes (Hospitalization, Other)
  Sender: FDA-Public Use
  Company Number: US-NOVAST LABORATORIES INC.-2024NOV000239

PATIENT
  Age: 70 Year
  Sex: Male

DRUGS (3)
  1. FLUOROURACIL [Suspect]
     Active Substance: FLUOROURACIL
     Indication: Tongue cancer metastatic
     Dosage: 750 MILLIGRAM/SQ. METER, FOR FOUR DOSES
     Route: 065
  2. DOCETAXEL [Concomitant]
     Active Substance: DOCETAXEL\DOCETAXEL ANHYDROUS
     Indication: Tongue cancer metastatic
     Dosage: 75 MILLIGRAM/SQ. METER
     Route: 065
  3. CARBOPLATIN [Concomitant]
     Active Substance: CARBOPLATIN
     Indication: Tongue cancer metastatic
     Dosage: 466 MILLIGRAM
     Route: 065

REACTIONS (4)
  - Pneumatosis intestinalis [Recovering/Resolving]
  - Encephalopathy [Recovering/Resolving]
  - Neutropenia [Recovering/Resolving]
  - Product use in unapproved indication [Unknown]
